FAERS Safety Report 6736358-8 (Version None)
Quarter: 2010Q2

REPORT INFORMATION
  Report Type: 
  Country: None (occurrence: None)
  Receive Date: 20100521
  Receipt Date: 20100512
  Transmission Date: 20101027
  Serious: Yes (Death, Other)
  Sender: FDA-Public Use
  Company Number: US-BAYER-200933498NA

PATIENT
  Sex: Female

DRUGS (6)
  1. YAZ [Suspect]
     Indication: CONTRACEPTION
     Dosage: YAZ AND/OR YASMIN
     Route: 064
  2. YASMIN [Suspect]
     Indication: CONTRACEPTION
     Route: 064
  3. NEEVO [Concomitant]
     Route: 064
     Dates: start: 20080801
  4. NEEVO [Concomitant]
     Route: 064
     Dates: start: 20081101
  5. TANDEN F [Concomitant]
     Route: 064
     Dates: start: 20081101
  6. TANDEN F [Concomitant]
     Route: 064
     Dates: start: 20080801

REACTIONS (1)
  - THROMBOSIS [None]
